FAERS Safety Report 7162069-3 (Version None)
Quarter: 2010Q4

REPORT INFORMATION
  Report Type: 
  Country: None (occurrence: None)
  Receive Date: 20101215
  Receipt Date: 20090803
  Transmission Date: 20110411
  Serious: Yes (Other)
  Sender: FDA-Public Use
  Company Number: CA-PFIZER INC-2009228514

PATIENT
  Age: 32 Year

DRUGS (3)
  1. LYRICA [Suspect]
     Indication: FACIAL PAIN
     Dosage: 75 MG, 1X/DAY AT NIGHT
     Dates: start: 20090612, end: 20090615
  2. DESOGESTREL AND ETHINYL ESTRADIOL [Concomitant]
     Dosage: UNK
  3. EUFLEX [Concomitant]
     Dosage: UNK

REACTIONS (4)
  - HYPERSOMNIA [None]
  - HYPOAESTHESIA FACIAL [None]
  - SOMNOLENCE [None]
  - SPEECH DISORDER [None]
